FAERS Safety Report 4995524-2 (Version None)
Quarter: 2006Q2

REPORT INFORMATION
  Report Type: 
  Country: None (occurrence: None)
  Receive Date: 20060508
  Receipt Date: 20051103
  Transmission Date: 20061013
  Serious: Yes (Hospitalization, Disabling)
  Sender: FDA-Public Use
  Company Number: US-ROCHE-423639

PATIENT
  Age: 24 Year
  Sex: Female
  Weight: 61.2 kg

DRUGS (2)
  1. ACCUTANE [Suspect]
     Route: 048
     Dates: start: 19900515, end: 19900915
  2. DEMULEN 1/35-21 [Concomitant]
     Dates: start: 19850615, end: 19900815

REACTIONS (43)
  - ANHEDONIA [None]
  - ANXIETY [None]
  - ARTHRITIS VIRAL [None]
  - ASTHMA [None]
  - AUTOIMMUNE THYROIDITIS [None]
  - BACK INJURY [None]
  - BRONCHITIS [None]
  - CHILLS [None]
  - COLITIS [None]
  - CONJUNCTIVITIS ALLERGIC [None]
  - CONNECTIVE TISSUE DISORDER [None]
  - CROHN'S DISEASE [None]
  - DEPRESSION [None]
  - DIZZINESS [None]
  - DYSPNOEA [None]
  - EAR PAIN [None]
  - ECONOMIC PROBLEM [None]
  - EPICONDYLITIS [None]
  - EPISTAXIS [None]
  - EUSTACHIAN TUBE DYSFUNCTION [None]
  - FRACTURE [None]
  - GASTROINTESTINAL DISORDER [None]
  - GASTROOESOPHAGEAL REFLUX DISEASE [None]
  - HERPES SIMPLEX [None]
  - HYPERHIDROSIS [None]
  - INFLAMMATORY BOWEL DISEASE [None]
  - INTESTINAL HAEMORRHAGE [None]
  - IRRITABLE BOWEL SYNDROME [None]
  - LARYNGITIS [None]
  - LYMPHADENOPATHY [None]
  - MULTIPLE ALLERGIES [None]
  - MYALGIA [None]
  - OTITIS MEDIA [None]
  - PAIN [None]
  - PERIPHERAL VASCULAR DISORDER [None]
  - RAYNAUD'S PHENOMENON [None]
  - RHINITIS PERENNIAL [None]
  - RHINITIS SEASONAL [None]
  - RIB FRACTURE [None]
  - SJOGREN'S SYNDROME [None]
  - SOFT TISSUE DISORDER [None]
  - TENDONITIS [None]
  - VIRAL UPPER RESPIRATORY TRACT INFECTION [None]
